FAERS Safety Report 7798230-4 (Version None)
Quarter: 2011Q4

REPORT INFORMATION
  Report Type: 
  Country: None (occurrence: None)
  Receive Date: 20111005
  Receipt Date: 20110927
  Transmission Date: 20120403
  Serious: Yes (Other)
  Sender: FDA-Public Use
  Company Number: US-US-EMD SERONO, INC.-7086300

PATIENT
  Sex: Female

DRUGS (5)
  1. REBIF [Suspect]
     Indication: MULTIPLE SCLEROSIS
     Route: 058
     Dates: start: 20101117
  2. CYMBALTA [Concomitant]
     Indication: ARTHRALGIA
  3. PERCOCET [Concomitant]
     Indication: ARTHRALGIA
  4. CYMBALTA [Concomitant]
     Indication: PAIN IN EXTREMITY
  5. PERCOCET [Concomitant]
     Indication: PAIN IN EXTREMITY

REACTIONS (2)
  - ENDOCRINE DISORDER [None]
  - CENTRAL NERVOUS SYSTEM LESION [None]
